APPROVED DRUG PRODUCT: TERCONAZOLE
Active Ingredient: TERCONAZOLE
Strength: 80MG
Dosage Form/Route: SUPPOSITORY;VAGINAL
Application: A076850 | Product #001
Applicant: FOUGERA PHARMACEUTICALS INC
Approved: Jul 12, 2006 | RLD: No | RS: No | Type: DISCN